FAERS Safety Report 10674246 (Version 3)
Quarter: 2015Q2

REPORT INFORMATION
  Report Type: Spontaneous
  Country: GB (occurrence: GB)
  Receive Date: 20141224
  Receipt Date: 20150626
  Transmission Date: 20150821
  Serious: Yes (Other)
  Sender: FDA-Public Use
  Company Number: GB-AMGEN-GBRSP2014100323

PATIENT
  Age: 66 Year
  Sex: Female
  Weight: 50.4 kg

DRUGS (2)
  1. ALENDRONIC ACID [Concomitant]
     Active Substance: ALENDRONIC ACID
     Dosage: 70 MG, QWK
     Dates: start: 2008, end: 2008
  2. PROLIA [Suspect]
     Active Substance: DENOSUMAB
     Indication: OSTEOPOROSIS POSTMENOPAUSAL
     Dosage: 60 MG, Q6MO
     Route: 058
     Dates: start: 20141127

REACTIONS (9)
  - Pruritus generalised [Recovered/Resolved]
  - Toothache [Unknown]
  - Skin reaction [Recovered/Resolved]
  - Bone disorder [Unknown]
  - Pain in jaw [Unknown]
  - Device breakage [Unknown]
  - Skin exfoliation [Recovering/Resolving]
  - Parkinson^s disease [Recovering/Resolving]
  - Arthropathy [Unknown]

NARRATIVE: CASE EVENT DATE: 201411
